FAERS Safety Report 18119118 (Version 2)
Quarter: 2020Q3

REPORT INFORMATION
  Report Type: Report from Study
  Country: US (occurrence: US)
  Receive Date: 20200806
  Receipt Date: 20200813
  Transmission Date: 20201103
  Serious: Yes (Hospitalization, Other)
  Sender: FDA-Public Use
  Company Number: US-SHIRE-US202025437

PATIENT
  Sex: Male

DRUGS (8)
  1. GATTEX [Suspect]
     Active Substance: TEDUGLUTIDE\WATER
     Indication: SHORT-BOWEL SYNDROME
     Dosage: 4.4 MILLIGRAM, 1X/DAY:QD
     Route: 058
     Dates: start: 20200707
  2. GATTEX [Suspect]
     Active Substance: TEDUGLUTIDE\WATER
     Indication: SHORT-BOWEL SYNDROME
     Dosage: 4.4 MILLIGRAM, 1X/DAY:QD
     Route: 058
     Dates: start: 20200707
  3. GATTEX [Suspect]
     Active Substance: TEDUGLUTIDE\WATER
     Dosage: UNK
     Route: 065
     Dates: start: 20200727
  4. GATTEX [Suspect]
     Active Substance: TEDUGLUTIDE\WATER
     Indication: SHORT-BOWEL SYNDROME
     Dosage: 4.4 MILLIGRAM, 1X/DAY:QD
     Route: 058
     Dates: start: 20200707
  5. GATTEX [Suspect]
     Active Substance: TEDUGLUTIDE\WATER
     Indication: SHORT-BOWEL SYNDROME
     Dosage: 4.4 MILLIGRAM, 1X/DAY:QD
     Route: 058
     Dates: start: 20200707
  6. GATTEX [Suspect]
     Active Substance: TEDUGLUTIDE\WATER
     Dosage: UNK
     Route: 065
     Dates: start: 20200727
  7. GATTEX [Suspect]
     Active Substance: TEDUGLUTIDE\WATER
     Dosage: UNK
     Route: 065
     Dates: start: 20200727
  8. GATTEX [Suspect]
     Active Substance: TEDUGLUTIDE\WATER
     Dosage: UNK
     Route: 065
     Dates: start: 20200727

REACTIONS (4)
  - Abscess [Unknown]
  - Pancreatitis [Unknown]
  - Swelling [Unknown]
  - Abdominal distension [Unknown]
